FAERS Safety Report 7948646-8 (Version None)
Quarter: 2011Q4

REPORT INFORMATION
  Report Type: 
  Country: None (occurrence: None)
  Receive Date: 20111123
  Receipt Date: 20111108
  Transmission Date: 20120403
  Serious: Yes (Life-Threatening, Hospitalization, Other)
  Sender: FDA-Public Use
  Company Number: PNIS20110011

PATIENT
  Age: 68 Year
  Sex: Male
  Weight: 92 kg

DRUGS (1)
  1. PREDNISOLONE [Suspect]
     Indication: IDIOPATHIC THROMBOCYTOPENIC PURPURA
     Dosage: DAILY FROM DAYS 8-21 ; DAILY FROM DAY 22

REACTIONS (19)
  - RESPIRATORY ARREST [None]
  - DISSEMINATED INTRAVASCULAR COAGULATION [None]
  - ANAL HAEMORRHAGE [None]
  - URINARY RETENTION [None]
  - INFLAMMATION [None]
  - KLEBSIELLA TEST POSITIVE [None]
  - PLATELET COUNT INCREASED [None]
  - ANAL FISTULA INFECTION [None]
  - ABDOMINAL PAIN LOWER [None]
  - RENAL IMPAIRMENT [None]
  - DIALYSIS [None]
  - SUBCUTANEOUS ABSCESS [None]
  - HYPOXIC-ISCHAEMIC ENCEPHALOPATHY [None]
  - CYTOMEGALOVIRUS TEST POSITIVE [None]
  - DYSARTHRIA [None]
  - SEPTIC SHOCK [None]
  - ENDOTOXIC SHOCK [None]
  - PROSTATIC ABSCESS [None]
  - NECROTISING FASCIITIS [None]
